FAERS Safety Report 16365141 (Version 2)
Quarter: 2019Q3

REPORT INFORMATION
  Report Type: Spontaneous
  Country: US (occurrence: US)
  Receive Date: 20190529
  Receipt Date: 20190910
  Transmission Date: 20191004
  Serious: Yes (Hospitalization)
  Sender: FDA-Public Use
  Company Number: US-009507513-1905USA010897

PATIENT
  Age: 83 Year
  Sex: Male
  Weight: 124.74 kg

DRUGS (1)
  1. PROSCAR [Suspect]
     Active Substance: FINASTERIDE
     Indication: BENIGN PROSTATIC HYPERPLASIA
     Dosage: 5 MILLIGRAM, ONCE A DAY
     Route: 048

REACTIONS (3)
  - Bronchial disorder [Unknown]
  - Sciatica [Unknown]
  - Feeling abnormal [Unknown]

NARRATIVE: CASE EVENT DATE: 201901
